FAERS Safety Report 10239005 (Version 1)
Quarter: 2014Q2

REPORT INFORMATION
  Report Type: Spontaneous
  Country: GB (occurrence: GB)
  Receive Date: 20140616
  Receipt Date: 20140616
  Transmission Date: 20141212
  Serious: Yes (Disabling, Other)
  Sender: FDA-Public Use
  Company Number: GB-ACTAVIS-2014-12470

PATIENT
  Age: 88 Year
  Sex: Male

DRUGS (4)
  1. DONEPEZIL (UNKNOWN) [Suspect]
     Indication: MEMORY IMPAIRMENT
     Dosage: 5 MG, UNKNOWN
     Route: 048
     Dates: start: 20140318, end: 20140402
  2. TAMSULOSIN [Concomitant]
     Indication: HYPERTENSION
     Dosage: 400 ?G, UNK; STARTED 2 YEARS AGO
     Route: 048
  3. FUROSEMIDE [Concomitant]
     Indication: HYPERTENSION
     Dosage: 40 MG, UNKNOWN; STARTED 2 YEARS AGO.
     Route: 048
  4. RAMIPRIL [Concomitant]
     Indication: HYPERTENSION
     Dosage: 10 MG, UNKNOWN; STARTED 2 YEARS AGO.
     Route: 048

REACTIONS (3)
  - Rash erythematous [Recovering/Resolving]
  - Rash [Recovering/Resolving]
  - Rash pruritic [Recovering/Resolving]
